FAERS Safety Report 7573313-2 (Version None)
Quarter: 2011Q2

REPORT INFORMATION
  Report Type: 
  Country: None (occurrence: None)
  Receive Date: 20110627
  Receipt Date: 20110616
  Transmission Date: 20111010
  Serious: Yes (Hospitalization)
  Sender: FDA-Public Use
  Company Number: US-SANOFI-AVENTIS-2011SA027060

PATIENT
  Age: 62 Year
  Sex: Male
  Weight: 104.32 kg

DRUGS (22)
  1. SOLOSTAR [Suspect]
     Indication: TYPE 2 DIABETES MELLITUS
     Dates: start: 20080101
  2. LANTUS [Suspect]
     Dosage: DOSE:55 UNIT(S)
     Route: 058
     Dates: start: 20081001
  3. CENTRUM [Concomitant]
     Dosage: 1 TABLET
  4. SOLOSTAR [Suspect]
     Dates: start: 20080101
  5. SOLOSTAR [Suspect]
     Dates: start: 20080101
  6. LANTUS [Suspect]
     Dosage: DOSE:55 UNIT(S)
     Route: 058
     Dates: start: 20081001
  7. ALTACE [Concomitant]
     Indication: BLOOD PRESSURE
     Dosage: 10 MG IN AM AND 10 MG IN PM
  8. SOLOSTAR [Suspect]
     Dates: start: 20080101
  9. LANTUS [Suspect]
     Dosage: DOSE:55 UNIT(S)
     Route: 058
     Dates: start: 20081001
  10. LANOXIN [Concomitant]
     Indication: HEART RATE
     Dosage: .25 AT DINNER
  11. CARDIZEM [Concomitant]
     Indication: BLOOD PRESSURE
     Dosage: 120 MG IN AM AND 120 MG AT 9:00 PM
  12. ASPIRIN [Concomitant]
  13. LANTUS [Suspect]
     Dosage: DOSE:55 UNIT(S)
     Route: 058
     Dates: start: 20081001
  14. ALL OTHER THERAPEUTIC PRODUCTS [Concomitant]
     Indication: ASTHMA
     Dosage: 1 PUFF MAINTANCE DOSE
  15. FLONASE [Concomitant]
     Dosage: 2 SPRAYS EACH NOSTRIL AT BEDTIME
  16. XANAX [Concomitant]
     Indication: PANIC DISORDER
     Dosage: .25 IN AM AND AT  9:00 PM AND AS NEEDED
  17. CLONIDINE [Concomitant]
     Indication: BLOOD PRESSURE
     Dosage: 1 PATCH CHANGE WEEKLY
  18. POTASSIUM [Concomitant]
     Dosage: 3  20 MEQ CR TAB
  19. AMARYL [Concomitant]
     Indication: BLOOD GLUCOSE
     Dosage: 4 MG WITH DINNER
  20. ACTOS [Concomitant]
     Indication: BLOOD GLUCOSE
     Dosage: 30 MG WITH DINNER
  21. NORVASC [Concomitant]
     Indication: BLOOD PRESSURE
     Dosage: AT 9:00 PM
  22. ALL OTHER THERAPEUTIC PRODUCTS [Concomitant]
     Indication: DIURETIC THERAPY
     Dosage: 25/ 37.5 MG

REACTIONS (5)
  - MYOCARDIAL INFARCTION [None]
  - INCORRECT STORAGE OF DRUG [None]
  - GLYCOSYLATED HAEMOGLOBIN INCREASED [None]
  - BLOOD GLUCOSE INCREASED [None]
  - PRODUCT QUALITY ISSUE [None]
